FAERS Safety Report 10685207 (Version 1)
Quarter: 2014Q4

REPORT INFORMATION
  Report Type: Spontaneous
  Country: US (occurrence: None)
  Receive Date: 20141229
  Receipt Date: 20141229
  Transmission Date: 20150529
  Serious: Yes (Other)
  Sender: FDA-Public Use
  Company Number: 2014SA174855

PATIENT
  Sex: Female

DRUGS (1)
  1. GOLD BOND ORIGINAL STRENGTH [Suspect]
     Active Substance: MENTHOL\ZINC OXIDE
     Indication: ACCIDENTAL EXPOSURE TO PRODUCT

REACTIONS (3)
  - Accidental exposure to product [None]
  - Asphyxia [None]
  - Dyspnoea [None]
